FAERS Safety Report 21433423 (Version 2)
Quarter: 2022Q4

REPORT INFORMATION
  Report Type: Spontaneous
  Country: US (occurrence: US)
  Receive Date: 20221010
  Receipt Date: 20221117
  Transmission Date: 20230113
  Serious: Yes (Hospitalization, Other)
  Sender: FDA-Public Use
  Company Number: US-BEH-2022150341

PATIENT
  Age: 13 Year
  Sex: Male

DRUGS (4)
  1. IDELVION [Suspect]
     Active Substance: COAGULATION FACTOR IX RECOMBINANT HUMAN
     Indication: Factor IX deficiency
     Dosage: 4500 INTERNATIONAL UNIT, QOW
     Route: 042
     Dates: start: 20220909
  2. IDELVION [Suspect]
     Active Substance: COAGULATION FACTOR IX RECOMBINANT HUMAN
     Indication: Factor IX deficiency
     Dosage: 4500 INTERNATIONAL UNIT, QOW
     Route: 042
     Dates: start: 20220909
  3. IDELVION [Suspect]
     Active Substance: COAGULATION FACTOR IX RECOMBINANT HUMAN
     Dosage: 4500 INTERNATIONAL UNIT, EVERY 14 DAYS
     Route: 042
     Dates: start: 202201
  4. IDELVION [Suspect]
     Active Substance: COAGULATION FACTOR IX RECOMBINANT HUMAN
     Dosage: 4500 INTERNATIONAL UNIT, EVERY 14 DAYS
     Route: 042
     Dates: start: 202201

REACTIONS (2)
  - Muscle haemorrhage [Unknown]
  - Appendicitis [Unknown]

NARRATIVE: CASE EVENT DATE: 20220913
